FAERS Safety Report 20616524 (Version 1)
Quarter: 2022Q1

REPORT INFORMATION
  Report Type: Spontaneous
  Country: MY (occurrence: MY)
  Receive Date: 20220321
  Receipt Date: 20220321
  Transmission Date: 20220424
  Serious: Yes (Other)
  Sender: FDA-Public Use
  Company Number: MY-LUNDBECK-DKLU3043172

PATIENT
  Age: 16 Year
  Sex: Female

DRUGS (1)
  1. BRINTELLIX [Suspect]
     Active Substance: VORTIOXETINE HYDROBROMIDE
     Indication: Depression
     Dosage: 5 MILLIGRAM, QD
     Route: 048
     Dates: start: 20210405, end: 20210418

REACTIONS (4)
  - Tardive dyskinesia [Recovered/Resolved]
  - Dyskinesia [Recovered/Resolved]
  - Product administered to patient of inappropriate age [Unknown]
  - Wrong technique in product usage process [Unknown]
